FAERS Safety Report 6748563-5 (Version None)
Quarter: 2010Q2

REPORT INFORMATION
  Report Type: 
  Country: None (occurrence: None)
  Receive Date: 20100601
  Receipt Date: 20100518
  Transmission Date: 20101027
  Serious: Yes (Other)
  Sender: FDA-Public Use
  Company Number: PT-JNJFOC-20100509789

PATIENT
  Age: 3 Year
  Sex: Female

DRUGS (3)
  1. REMICADE [Suspect]
     Indication: PUSTULAR PSORIASIS
     Dosage: 5 MG/KG AT WEEKS 0, 2, AND 6
     Route: 042
  2. REMICADE [Suspect]
     Dosage: 5 MG/KG AT WEEKS 0, 2, AND 6
     Route: 042
  3. METHOTREXATE [Suspect]
     Indication: PUSTULAR PSORIASIS

REACTIONS (7)
  - HEPATOTOXICITY [None]
  - NAIL DYSTROPHY [None]
  - NEUTRALISING ANTIBODIES [None]
  - PHARYNGITIS [None]
  - PITYRIASIS [None]
  - PUSTULAR PSORIASIS [None]
  - UPPER RESPIRATORY TRACT INFECTION [None]
